FAERS Safety Report 25730857 (Version 1)
Quarter: 2025Q3

REPORT INFORMATION
  Report Type: Spontaneous
  Country: US (occurrence: None)
  Receive Date: 20250826
  Receipt Date: 20250826
  Transmission Date: 20251020
  Serious: Yes (Hospitalization)
  Sender: FDA-CTU
  Company Number: None

PATIENT
  Age: 87 Year
  Sex: Female
  Weight: 94.05 kg

DRUGS (1)
  1. BIOFREEZE COOL THE PAIN OVERNIGHT RELIEF MENTHOL PAIN RELIEVING LAVEND [Suspect]
     Active Substance: MENTHOL
     Indication: Arthritis
     Dosage: OTHER QUANTITY : 1 1;?FREQUENCY : EVERY 6 HOURS;?
     Route: 061
     Dates: start: 20250820, end: 20250820

REACTIONS (5)
  - Application site burn [None]
  - Chemical burn [None]
  - Application site vesicles [None]
  - Application site urticaria [None]
  - Application site pain [None]

NARRATIVE: CASE EVENT DATE: 20250820
